FAERS Safety Report 22115821 (Version 2)
Quarter: 2023Q1

REPORT INFORMATION
  Report Type: Spontaneous
  Country: DE (occurrence: DE)
  Receive Date: 20230320
  Receipt Date: 20230330
  Transmission Date: 20230417
  Serious: Yes (Other)
  Sender: FDA-Public Use
  Company Number: DE-ROCHE-3299431

PATIENT
  Age: 57 Year
  Sex: Male

DRUGS (28)
  1. DOXORUBICIN [Suspect]
     Active Substance: DOXORUBICIN
     Indication: Diffuse large B-cell lymphoma
     Dosage: FIRST LINE WITH RITXUXIMAB 4 TIMESSECOND LINE
     Route: 065
     Dates: start: 20210226, end: 20211015
  2. BENDAMUSTINE HYDROCHLORIDE [Suspect]
     Active Substance: BENDAMUSTINE HYDROCHLORIDE
     Indication: Lymphoma
     Dosage: FOURTH LINE WITH RITUXIMAB AND POLATUZUMAB
     Route: 065
     Dates: start: 20221103, end: 20230122
  3. BENDAMUSTINE HYDROCHLORIDE [Suspect]
     Active Substance: BENDAMUSTINE HYDROCHLORIDE
     Indication: Diffuse large B-cell lymphoma
  4. CYTARABINE [Suspect]
     Active Substance: CYTARABINE
     Indication: Lymphoma
     Dosage: FOURTH LINE WITH RITUXIMAB AND POLATUZUMAB
     Route: 065
     Dates: start: 20211117, end: 20211230
  5. CYTARABINE [Suspect]
     Active Substance: CYTARABINE
     Indication: Diffuse large B-cell lymphoma
  6. ADRIAMYCIN [Suspect]
     Active Substance: DOXORUBICIN HYDROCHLORIDE
     Indication: Lymphoma
     Dosage: UNK
     Route: 065
     Dates: start: 20210226, end: 20211015
  7. ADRIAMYCIN [Suspect]
     Active Substance: DOXORUBICIN HYDROCHLORIDE
     Indication: Diffuse large B-cell lymphoma
  8. DEXAMETHASONE [Suspect]
     Active Substance: DEXAMETHASONE
     Indication: Lymphoma
     Dosage: FOURTH LINE WITH RITUXIMAB AND POLATUZUMAB
     Route: 065
     Dates: start: 20211117, end: 20211230
  9. DEXAMETHASONE [Suspect]
     Active Substance: DEXAMETHASONE
     Indication: Diffuse large B-cell lymphoma
  10. POLATUZUMAB VEDOTIN [Suspect]
     Active Substance: POLATUZUMAB VEDOTIN
     Indication: Lymphoma
     Dosage: UNK, FOURTH LINE WITH RITUXIMAB AND BENDAMUSTIN
     Route: 065
     Dates: start: 20221103, end: 20230122
  11. POLATUZUMAB VEDOTIN [Suspect]
     Active Substance: POLATUZUMAB VEDOTIN
     Indication: Diffuse large B-cell lymphoma
  12. BLEOMYCIN [Suspect]
     Active Substance: BLEOMYCIN SULFATE
     Indication: Lymphoma
     Dosage: FOURTH LINE WITH RITUXIMAB AND POLATUZUMAB
     Route: 065
     Dates: start: 20210226, end: 20211015
  13. BLEOMYCIN [Suspect]
     Active Substance: BLEOMYCIN SULFATE
     Indication: Diffuse large B-cell lymphoma
  14. CYCLOPHOSPHAMIDE [Suspect]
     Active Substance: CYCLOPHOSPHAMIDE
     Indication: Lymphoma
     Dosage: FIRST LINE WITH RITXUXIMAB
     Route: 065
     Dates: start: 20210226, end: 20211015
  15. CYCLOPHOSPHAMIDE [Suspect]
     Active Substance: CYCLOPHOSPHAMIDE
     Indication: Diffuse large B-cell lymphoma
  16. PREDNISONE [Suspect]
     Active Substance: PREDNISONE
     Indication: Lymphoma
     Dosage: FOURTH LINE WITH RITUXIMAB AND POLATUZUMAB
     Route: 065
     Dates: start: 20210226, end: 20211015
  17. PREDNISONE [Suspect]
     Active Substance: PREDNISONE
     Indication: Diffuse large B-cell lymphoma
  18. RITUXIMAB [Suspect]
     Active Substance: RITUXIMAB
     Indication: Lymphoma
     Dosage: UNK
     Route: 065
     Dates: start: 20210226, end: 20211015
  19. RITUXIMAB [Suspect]
     Active Substance: RITUXIMAB
     Indication: Diffuse large B-cell lymphoma
     Dosage: UNK
     Route: 065
     Dates: start: 20221103, end: 20230122
  20. RITUXIMAB [Suspect]
     Active Substance: RITUXIMAB
     Dosage: UNK
     Route: 065
     Dates: start: 20211117, end: 20211230
  21. VINDESINE [Suspect]
     Active Substance: VINDESINE
     Indication: Lymphoma
     Dosage: SECOND LINE RITUXIMAB FIRST LINE WITH RITXUXIMAB
     Route: 065
     Dates: start: 20210226, end: 20211015
  22. VINDESINE [Suspect]
     Active Substance: VINDESINE
     Indication: Diffuse large B-cell lymphoma
  23. OXALIPLATIN [Suspect]
     Active Substance: OXALIPLATIN
     Indication: Lymphoma
     Dosage: FOURTH LINE WITH RITUXIMAB AND POLATUZUMAB 03/NOV
     Route: 065
     Dates: start: 20211117, end: 20211230
  24. OXALIPLATIN [Suspect]
     Active Substance: OXALIPLATIN
     Indication: Diffuse large B-cell lymphoma
  25. ETOPOSIDE [Suspect]
     Active Substance: ETOPOSIDE
     Indication: Diffuse large B-cell lymphoma
     Dosage: WITH RITUXIMAB IFOSFAMIDE AND 4 TIMESSECOND
     Route: 065
     Dates: start: 20210226, end: 20211015
  26. IFOSFAMIDE [Suspect]
     Active Substance: IFOSFAMIDE
     Indication: Diffuse large B-cell lymphoma
     Dosage: WITH RITUXIMAB ETOPOSIDE AND 4 TIMESSECOND LI
     Route: 065
     Dates: start: 20210226, end: 20211015
  27. METHOTREXATE [Suspect]
     Active Substance: METHOTREXATE
     Indication: Diffuse large B-cell lymphoma
     Dosage: WITH RITUXIMAB 2 TIMESSECOND LINE WITH DHAOX 17/
     Route: 065
     Dates: start: 20210226, end: 20211015
  28. VINCRISTINE [Suspect]
     Active Substance: VINCRISTINE
     Indication: Diffuse large B-cell lymphoma
     Dosage: UNK
     Route: 065

REACTIONS (1)
  - Lymphoma [Not Recovered/Not Resolved]
